FAERS Safety Report 5809241-X (Version None)
Quarter: 2008Q3

REPORT INFORMATION
  Report Type: 
  Country: None (occurrence: None)
  Receive Date: 20080714
  Receipt Date: 20080704
  Transmission Date: 20090109
  Serious: Yes (Hospitalization)
  Sender: FDA-Public Use
  Company Number: JP-PFIZER INC-2008057471

PATIENT
  Age: 94 Year
  Sex: Female

DRUGS (7)
  1. AMLODIPINE [Suspect]
     Indication: HYPERTENSION
     Dosage: DAILY DOSE:5MG
     Route: 048
     Dates: start: 20080428, end: 20080617
  2. HALCION [Concomitant]
     Route: 048
  3. SELBEX [Concomitant]
     Route: 048
  4. ADALAT [Concomitant]
     Route: 048
  5. GASTER [Concomitant]
  6. LASIX [Concomitant]
  7. AMARYL [Concomitant]
     Route: 048

REACTIONS (1)
  - BLISTER [None]
